FAERS Safety Report 5775041-2 (Version None)
Quarter: 2008Q2

REPORT INFORMATION
  Report Type: 
  Country: None (occurrence: None)
  Receive Date: 20080617
  Receipt Date: 20080606
  Transmission Date: 20081010
  Serious: Yes (Life-Threatening)
  Sender: FDA-Public Use
  Company Number: US-JNJFOC-20080402854

PATIENT
  Sex: Male
  Weight: 66.68 kg

DRUGS (6)
  1. INFLIXIMAB [Suspect]
     Route: 042
  2. INFLIXIMAB [Suspect]
     Route: 042
  3. INFLIXIMAB [Suspect]
     Indication: CROHN'S DISEASE
     Dosage: UNKNOWN INFUSIONS PRIOR TO BASELINE
     Route: 042
  4. ANTIBIOTICS [Concomitant]
     Indication: CROHN'S DISEASE
  5. NARCOTIC ANALGESICS [Concomitant]
     Indication: CROHN'S DISEASE
  6. PHENERGAN [Concomitant]
     Indication: CROHN'S DISEASE

REACTIONS (1)
  - CANDIDIASIS [None]
